FAERS Safety Report 10936615 (Version 2)
Quarter: 2015Q2

REPORT INFORMATION
  Report Type: Spontaneous
  Country: GB (occurrence: GB)
  Receive Date: 20150321
  Receipt Date: 20150407
  Transmission Date: 20150821
  Serious: Yes (Other)
  Sender: FDA-Public Use
  Company Number: GB-JNJFOC-20150305969

PATIENT
  Age: 57 Year
  Sex: Female
  Weight: 64.86 kg

DRUGS (9)
  1. SUDAFED NASAL DECONGESTANT MAXIMUM STRENGTH [Suspect]
     Active Substance: PSEUDOEPHEDRINE HYDROCHLORIDE
     Indication: COUGH
     Dosage: CUMULATIVE DOSE TO FIRST REACTION 06 (UNIT UNSPECIFIED)
     Route: 065
     Dates: start: 20150220, end: 20150222
  2. MENTHOL. [Concomitant]
     Active Substance: MENTHOL
     Indication: INFLUENZA
     Route: 065
  3. STREPSILS (AMYLMETACRESOL\DICHLOROBENZYL ALCOHOL) [Concomitant]
     Active Substance: AMYLMETACRESOL\DICHLOROBENZYL ALCOHOL
     Indication: INFLUENZA
     Route: 065
  4. FRIARS BALSAM [Concomitant]
     Indication: INFLUENZA
     Route: 065
  5. BENYLIN MUCUS COUGH (GUAIFENESIN/LEVOMENTHOL) [Concomitant]
     Indication: PRODUCT USED FOR UNKNOWN INDICATION
     Route: 065
  6. SUDAFED NASAL DECONGESTANT MAXIMUM STRENGTH [Suspect]
     Active Substance: PSEUDOEPHEDRINE HYDROCHLORIDE
     Route: 065
  7. HYDROXYCHLOROQUINE [Concomitant]
     Active Substance: HYDROXYCHLOROQUINE
     Indication: PSORIATIC ARTHROPATHY
     Dosage: STOPPED 5 WEEK AGO AS DIDN^T SEEMS TO BE HELPING
     Route: 065
  8. NUROFEN [Concomitant]
     Active Substance: IBUPROFEN
     Route: 065
  9. NUTRITIONAL SUPPLEMENT [Concomitant]
     Active Substance: DIETARY SUPPLEMENT
     Route: 065

REACTIONS (2)
  - Insomnia [Recovered/Resolved]
  - Thirst [Recovered/Resolved]

NARRATIVE: CASE EVENT DATE: 20150220
